FAERS Safety Report 19079858 (Version 1)
Quarter: 2021Q1

REPORT INFORMATION
  Report Type: Spontaneous
  Country: JP (occurrence: JP)
  Receive Date: 20210331
  Receipt Date: 20210331
  Transmission Date: 20210420
  Serious: Yes (Hospitalization)
  Sender: FDA-Public Use
  Company Number: JP-VALIDUS PHARMACEUTICALS LLC-JP-2021VAL000908

PATIENT
  Age: 74 Year
  Sex: Male

DRUGS (51)
  1. FOLIAMIN [Suspect]
     Active Substance: FOLIC ACID
     Indication: PRODUCT USED FOR UNKNOWN INDICATION
     Dosage: 1 DF, TID
     Route: 048
     Dates: start: 20180319, end: 20180325
  2. DAIKENCHUTO [Suspect]
     Active Substance: HERBALS
     Indication: PRODUCT USED FOR UNKNOWN INDICATION
     Dosage: 1 DF, TID
     Route: 065
     Dates: start: 20180324, end: 20180410
  3. FENTANYL CITRATE. [Suspect]
     Active Substance: FENTANYL CITRATE
     Indication: PRODUCT USED FOR UNKNOWN INDICATION
     Dosage: 10 ML, QD
     Route: 041
     Dates: start: 20180322, end: 20180323
  4. MEYLON [Suspect]
     Active Substance: SODIUM BICARBONATE
     Indication: PRODUCT USED FOR UNKNOWN INDICATION
     Dosage: 1 DF, QD
     Route: 041
     Dates: start: 20180324, end: 20180324
  5. LASIX [Suspect]
     Active Substance: FUROSEMIDE
     Indication: FEMORAL ARTERY ANEURYSM
  6. BISOPROLOL FUMARATE. [Suspect]
     Active Substance: BISOPROLOL FUMARATE
     Dosage: 0.5 DF, QD
     Route: 048
     Dates: start: 20180329, end: 20180410
  7. CRESTOR OD [Suspect]
     Active Substance: ROSUVASTATIN CALCIUM
     Indication: PRODUCT USED FOR UNKNOWN INDICATION
     Dosage: 2 DF, QD
     Route: 048
     Dates: start: 20180319, end: 20180319
  8. OLMETEC [Suspect]
     Active Substance: OLMESARTAN MEDOXOMIL
     Indication: PRODUCT USED FOR UNKNOWN INDICATION
     Dosage: 1 DF, QD
     Route: 048
     Dates: start: 20180321, end: 20180322
  9. GLYCEROL [Suspect]
     Active Substance: GLYCERIN
     Indication: PRODUCT USED FOR UNKNOWN INDICATION
     Dosage: 1 DF, QD
     Route: 048
     Dates: start: 20180322, end: 20180322
  10. MEYLON [Suspect]
     Active Substance: SODIUM BICARBONATE
     Indication: PRODUCT USED FOR UNKNOWN INDICATION
     Dosage: UNK DF, QD
     Route: 041
     Dates: start: 20180322, end: 20180328
  11. ALBUMINAR [Suspect]
     Active Substance: ALBUMIN HUMAN
     Indication: PRODUCT USED FOR UNKNOWN INDICATION
     Dosage: UNK DF, QD
     Route: 041
     Dates: start: 20180422, end: 20180429
  12. MEYLON [Suspect]
     Active Substance: SODIUM BICARBONATE
     Indication: PRODUCT USED FOR UNKNOWN INDICATION
     Dosage: UNK
     Route: 041
     Dates: start: 20180322, end: 20180404
  13. MEYLON [Suspect]
     Active Substance: SODIUM BICARBONATE
     Indication: PRODUCT USED FOR UNKNOWN INDICATION
     Dosage: 0.2 DF, QD
     Route: 041
     Dates: start: 20180324, end: 20180324
  14. LASIX [Suspect]
     Active Substance: FUROSEMIDE
     Indication: HYPERTENSION
     Dosage: 10 MG, QD
     Route: 042
     Dates: start: 20180322, end: 20180329
  15. MAGCOROL P [Suspect]
     Active Substance: MAGNESIUM CITRATE
     Indication: PRODUCT USED FOR UNKNOWN INDICATION
     Dosage: 1 DF, QD
     Route: 048
     Dates: start: 20180320, end: 20180320
  16. SENNOSIDE A+B [Suspect]
     Active Substance: SENNOSIDES A AND B
     Indication: PRODUCT USED FOR UNKNOWN INDICATION
     Dosage: 2 DF, QD
     Route: 048
     Dates: start: 20180320, end: 20180321
  17. HARTMANN /03352501/ [Suspect]
     Active Substance: CALCIUM CHLORIDE\MAGNESIUM CHLORIDE\POTASSIUM CHLORIDE\SODIUM CHLORIDE\SODIUM LACTATE
     Indication: PRODUCT USED FOR UNKNOWN INDICATION
     Dosage: UNK DF, QD
     Route: 041
     Dates: start: 20180320, end: 20180322
  18. CEFAZOLIN SODIUM. [Suspect]
     Active Substance: CEFAZOLIN SODIUM
     Indication: PRODUCT USED FOR UNKNOWN INDICATION
     Dosage: 1 DF, UNK
     Route: 041
     Dates: start: 20180322, end: 20180322
  19. FENTANYL CITRATE. [Suspect]
     Active Substance: FENTANYL CITRATE
     Indication: PRODUCT USED FOR UNKNOWN INDICATION
     Dosage: 10 ML, QD
     Route: 041
     Dates: start: 20180322, end: 20180322
  20. ADALAT [Suspect]
     Active Substance: NIFEDIPINE
     Indication: PRODUCT USED FOR UNKNOWN INDICATION
     Dosage: 1 DF, QD
     Route: 048
     Dates: start: 20180319, end: 20180325
  21. BISOPROLOL FUMARATE. [Suspect]
     Active Substance: BISOPROLOL FUMARATE
     Dosage: 2 DF, QD
     Route: 048
     Dates: start: 20180321, end: 20180321
  22. AMLODIPINE BESILATE [Suspect]
     Active Substance: AMLODIPINE BESYLATE
     Indication: PRODUCT USED FOR UNKNOWN INDICATION
     Dosage: 1 DF, QD
     Route: 048
     Dates: start: 20180319, end: 20180322
  23. DAIKENCHUTO [Suspect]
     Active Substance: HERBALS
     Indication: PRODUCT USED FOR UNKNOWN INDICATION
     Dosage: 1 DF, TID
     Route: 048
     Dates: start: 20180324, end: 20180410
  24. MEYLON [Suspect]
     Active Substance: SODIUM BICARBONATE
     Indication: PRODUCT USED FOR UNKNOWN INDICATION
     Dosage: UNK DF, QD
     Route: 041
     Dates: start: 20180322, end: 20180328
  25. MEYLON [Suspect]
     Active Substance: SODIUM BICARBONATE
     Indication: PRODUCT USED FOR UNKNOWN INDICATION
     Dosage: 2 DF, QD
     Route: 041
     Dates: start: 20180323, end: 20180408
  26. CRESTOR OD [Suspect]
     Active Substance: ROSUVASTATIN CALCIUM
     Indication: PRODUCT USED FOR UNKNOWN INDICATION
     Dosage: 1 DF, QD
     Route: 048
     Dates: start: 20180311, end: 20180318
  27. CRESTOR OD [Suspect]
     Active Substance: ROSUVASTATIN CALCIUM
     Dosage: 4 DF, QD
     Route: 048
     Dates: start: 20180320, end: 20180320
  28. SOLULACT [Suspect]
     Active Substance: CALCIUM CHLORIDE\POTASSIUM CHLORIDE\SODIUM CHLORIDE\SODIUM LACTATE
     Dosage: 3 DF, UNK
     Route: 041
     Dates: start: 20180320, end: 20180320
  29. TACHOSIL [Suspect]
     Active Substance: FIBRINOGEN HUMAN\THROMBIN HUMAN
     Indication: PRODUCT USED FOR UNKNOWN INDICATION
     Dosage: 1 DF, QD
     Route: 065
     Dates: start: 20180322, end: 20180322
  30. MEYLON [Suspect]
     Active Substance: SODIUM BICARBONATE
     Indication: PRODUCT USED FOR UNKNOWN INDICATION
     Dosage: 1 DF, QD
     Route: 041
     Dates: start: 20180322, end: 20180325
  31. MEYLON [Suspect]
     Active Substance: SODIUM BICARBONATE
     Indication: PRODUCT USED FOR UNKNOWN INDICATION
     Dosage: UNK DF, UNK
     Route: 041
     Dates: start: 20180323, end: 20180408
  32. MEYLON [Suspect]
     Active Substance: SODIUM BICARBONATE
     Indication: PRODUCT USED FOR UNKNOWN INDICATION
     Dosage: 2 DF, UNK
     Route: 041
     Dates: start: 20180323, end: 20180408
  33. MEYLON [Suspect]
     Active Substance: SODIUM BICARBONATE
     Indication: PRODUCT USED FOR UNKNOWN INDICATION
     Dosage: UNK DF, QD
     Route: 041
     Dates: start: 20180323, end: 20180325
  34. MEYLON [Suspect]
     Active Substance: SODIUM BICARBONATE
     Indication: PRODUCT USED FOR UNKNOWN INDICATION
     Dosage: 2 DF, QD
     Route: 041
     Dates: start: 20180324, end: 20180325
  35. BISOPROLOL FUMARATE. [Suspect]
     Active Substance: BISOPROLOL FUMARATE
     Dosage: 3 DF, QD
     Route: 048
     Dates: start: 20180319, end: 20180320
  36. CRESTOR OD [Suspect]
     Active Substance: ROSUVASTATIN CALCIUM
     Dosage: 1 DF, QD
     Route: 048
     Dates: start: 20180320, end: 20180322
  37. CRESTOR OD [Suspect]
     Active Substance: ROSUVASTATIN CALCIUM
     Dosage: 2 DF, QD
     Route: 048
     Dates: start: 20180321, end: 20180321
  38. MEYLON [Suspect]
     Active Substance: SODIUM BICARBONATE
     Indication: PRODUCT USED FOR UNKNOWN INDICATION
     Dosage: 2 DF, QD
     Route: 065
     Dates: start: 20180422, end: 20180423
  39. MEYLON [Suspect]
     Active Substance: SODIUM BICARBONATE
     Indication: PRODUCT USED FOR UNKNOWN INDICATION
     Dosage: 1 DF, QD
     Route: 041
     Dates: start: 20180422, end: 20180424
  40. MEYLON [Suspect]
     Active Substance: SODIUM BICARBONATE
     Indication: PRODUCT USED FOR UNKNOWN INDICATION
     Dosage: UNK DF, QD
     Route: 041
     Dates: start: 20180324, end: 20180406
  41. MEYLON [Suspect]
     Active Substance: SODIUM BICARBONATE
     Dosage: 1 DF, QD
     Route: 041
     Dates: start: 20180325, end: 20180325
  42. BISOPROLOL FUMARATE. [Suspect]
     Active Substance: BISOPROLOL FUMARATE
     Indication: PRODUCT USED FOR UNKNOWN INDICATION
     Dosage: 1 DF, QD
     Route: 048
     Dates: start: 20180311, end: 20180318
  43. BISOPROLOL FUMARATE. [Suspect]
     Active Substance: BISOPROLOL FUMARATE
     Dosage: 1 DF, QD
     Route: 048
     Dates: start: 20180322, end: 20180322
  44. OMEPRAZOLE                         /00661202/ [Suspect]
     Active Substance: OMEPRAZOLE SODIUM
     Indication: PRODUCT USED FOR UNKNOWN INDICATION
     Dosage: UNK ML, UNK
     Route: 065
     Dates: start: 20180322, end: 20180325
  45. MEYLON [Suspect]
     Active Substance: SODIUM BICARBONATE
     Indication: PRODUCT USED FOR UNKNOWN INDICATION
     Dosage: 1 DF, QD
     Route: 041
     Dates: start: 20180323, end: 20180323
  46. CRESTOR OD [Suspect]
     Active Substance: ROSUVASTATIN CALCIUM
     Dosage: 2 DF, QD
     Route: 048
     Dates: start: 20180319, end: 20180319
  47. SOLULACT [Suspect]
     Active Substance: CALCIUM CHLORIDE\POTASSIUM CHLORIDE\SODIUM CHLORIDE\SODIUM LACTATE
     Indication: PRODUCT USED FOR UNKNOWN INDICATION
     Dosage: 2 DF, QD
     Route: 041
     Dates: start: 20180322, end: 20180322
  48. SOLULACT [Suspect]
     Active Substance: CALCIUM CHLORIDE\POTASSIUM CHLORIDE\SODIUM CHLORIDE\SODIUM LACTATE
     Dosage: 2 DF, UNK
     Route: 041
     Dates: start: 20180322, end: 20180322
  49. MEYLON [Suspect]
     Active Substance: SODIUM BICARBONATE
     Indication: PRODUCT USED FOR UNKNOWN INDICATION
     Dosage: UNK DF, QD
     Route: 041
     Dates: start: 20180323, end: 20180324
  50. MEYLON [Suspect]
     Active Substance: SODIUM BICARBONATE
     Dosage: 2 DF, QD
     Route: 041
     Dates: start: 20180325, end: 20180404
  51. MEYLON [Suspect]
     Active Substance: SODIUM BICARBONATE
     Indication: PRODUCT USED FOR UNKNOWN INDICATION
     Dosage: UNK DF, QD
     Route: 041
     Dates: start: 20180324, end: 20180404

REACTIONS (1)
  - Blood bilirubin increased [Recovered/Resolved]

NARRATIVE: CASE EVENT DATE: 20180324
